FAERS Safety Report 8903146 (Version 1)
Quarter: 2012Q4

REPORT INFORMATION
  Report Type: 
  Country: SE (occurrence: SE)
  Receive Date: 20121113
  Receipt Date: 20121113
  Transmission Date: 20130627
  Serious: Yes (Hospitalization)
  Sender: FDA-Public Use
  Company Number: SE-PFIZER INC-2012278677

PATIENT
  Age: 82 Year
  Sex: Male
  Weight: 73 kg

DRUGS (13)
  1. GENOTROPIN [Suspect]
     Dosage: 0.27 mg, 1x/day, 7 injections/week
     Route: 058
     Dates: start: 19990428
  2. LEVOTHYROXINE [Concomitant]
     Indication: TSH DECREASED
     Dosage: UNK
     Dates: start: 19830501
  3. LEVOTHYROXINE [Concomitant]
     Indication: PRIMARY HYPOTHYROIDISM
  4. CORTISONE ACETATE [Concomitant]
     Indication: BLOOD CORTICOTROPHIN DECREASED
     Dosage: UNK
     Dates: start: 19830501
  5. DESMOPRESSIN [Concomitant]
     Indication: BLOOD ANTIDIURETIC HORMONE DECREASED
     Dosage: UNK
     Dates: start: 19830501
  6. TESTOSTERONE [Concomitant]
     Indication: TESTICULAR HYPOGONADISM
     Dosage: UNK
     Dates: start: 19830801
  7. TESTOSTERONE [Concomitant]
     Indication: LUTEINISING HORMONE DEFICIENCY
  8. TESTOSTERONE [Concomitant]
     Indication: FOLLICLE-STIMULATING HORMONE DEFICIENCY
  9. ATMOS [Concomitant]
     Indication: LUTEINISING HORMONE DEFICIENCY
     Dosage: UNK
     Dates: start: 19971106
  10. ATMOS [Concomitant]
     Indication: FOLLICLE-STIMULATING HORMONE DEFICIENCY
  11. ATMOS [Concomitant]
     Indication: TESTICULAR HYPOGONADISM
  12. OMEPRAZOLE [Concomitant]
     Indication: REFLUX GASTRITIS
     Dosage: UNK
     Dates: start: 19980301
  13. TROMBYL [Concomitant]
     Dosage: UNK
     Dates: start: 20000229

REACTIONS (2)
  - Pyrexia [Unknown]
  - Balance disorder [Unknown]
